FAERS Safety Report 8886241 (Version 3)
Quarter: 2012Q4

REPORT INFORMATION
  Report Type: 
  Country: AT (occurrence: AT)
  Receive Date: 20121105
  Receipt Date: 20121123
  Transmission Date: 20130627
  Serious: Yes (Death, Life-Threatening, Other)
  Sender: FDA-Public Use
  Company Number: AT-B.I. PHARMACEUTICALS,INC./RIDGEFIELD-2012-AP-00965AP

PATIENT
  Age: 77 Year
  Sex: Female

DRUGS (7)
  1. PRADAXA [Suspect]
     Indication: ATRIAL FIBRILLATION
     Dosage: 220 mg
     Route: 048
     Dates: end: 20121009
  2. THIAMIZOL [Concomitant]
     Dosage: 10 mg
     Route: 048
  3. COLDEN [Concomitant]
     Dosage: 5 NR
     Route: 048
  4. CONCOR [Concomitant]
     Dosage: 2.5 NR
     Route: 048
  5. VENLAFAB [Concomitant]
     Dosage: 300 NR
     Route: 048
  6. TRESLEN [Concomitant]
     Dosage: 50 NR
     Route: 048
  7. PANTOLOC [Concomitant]
     Dosage: 40 NR
     Route: 048

REACTIONS (5)
  - Haematochezia [Fatal]
  - Large intestinal haemorrhage [Fatal]
  - Cardiac failure [Unknown]
  - Abdominal pain upper [Unknown]
  - Vomiting [Unknown]
